FAERS Safety Report 4291394-9 (Version None)
Quarter: 2004Q1

REPORT INFORMATION
  Report Type: 
  Country: None (occurrence: None)
  Receive Date: 20040211
  Receipt Date: 20030108
  Transmission Date: 20041129
  Serious: No
  Sender: FDA-Public Use
  Company Number: US-BRISTOL-MYERS SQUIBB COMPANY-12153490

PATIENT
  Age: 78 Year
  Sex: Female

DRUGS (7)
  1. CEFZIL [Suspect]
     Indication: SINUSITIS
     Route: 048
     Dates: start: 20030103
  2. SYNTHROID [Concomitant]
  3. ESTRACE [Concomitant]
  4. NORVASC [Concomitant]
  5. VISTARIL [Concomitant]
  6. TOPROL-XL [Concomitant]
  7. LORTAB [Concomitant]

REACTIONS (4)
  - EPISTAXIS [None]
  - HEADACHE [None]
  - NAUSEA [None]
  - URTICARIA [None]
